FAERS Safety Report 18360941 (Version 1)
Quarter: 2020Q4

REPORT INFORMATION
  Report Type: Spontaneous
  Country: US (occurrence: US)
  Receive Date: 20201008
  Receipt Date: 20201008
  Transmission Date: 20210114
  Serious: Yes (Other)
  Sender: FDA-Public Use
  Company Number: None

PATIENT
  Age: 37 Year
  Sex: Male
  Weight: 108.9 kg

DRUGS (8)
  1. AZITHROMYCIN ANHYDROUS. [Concomitant]
     Active Substance: AZITHROMYCIN ANHYDROUS
  2. PLASMA [Concomitant]
     Active Substance: HUMAN PLASMA
  3. EPOPROSTENOL. [Concomitant]
     Active Substance: EPOPROSTENOL
  4. SOLU-MEDROL [Concomitant]
     Active Substance: METHYLPREDNISOLONE SODIUM SUCCINATE
  5. ASCORBIC ACID. [Concomitant]
     Active Substance: ASCORBIC ACID
  6. REMDESIVIR FOR INJECTION, 100MG/VIAL [Suspect]
     Active Substance: REMDESIVIR
     Indication: COVID-19 PNEUMONIA
     Dosage: ?          OTHER ROUTE:IVPB?
     Route: 042
     Dates: start: 20200910, end: 20200921
  7. CEFTRIAXONE. [Concomitant]
     Active Substance: CEFTRIAXONE
  8. REMDESIVIR FOR INJECTION, 100MG/VIAL [Suspect]
     Active Substance: REMDESIVIR

REACTIONS (3)
  - Acute kidney injury [None]
  - Haemodialysis [None]
  - Hepatic failure [None]

NARRATIVE: CASE EVENT DATE: 20200920
